FAERS Safety Report 4327411-7 (Version None)
Quarter: 2004Q1

REPORT INFORMATION
  Report Type: 
  Country: None (occurrence: None)
  Receive Date: 20040330
  Receipt Date: 20040317
  Transmission Date: 20041129
  Serious: Yes (Hospitalization)
  Sender: FDA-Public Use
  Company Number: IT-MERCK-0403ITA00025

PATIENT
  Age: 36 Year
  Sex: Female

DRUGS (3)
  1. CRIXIVAN [Suspect]
     Indication: HIV INFECTION
     Route: 048
  2. LAMIVUDINE [Suspect]
     Indication: HIV INFECTION
     Route: 048
  3. STAVUDINE [Suspect]
     Indication: HIV INFECTION
     Route: 048

REACTIONS (6)
  - DEMYELINATING POLYNEUROPATHY [None]
  - FATIGUE [None]
  - HYPERLACTACIDAEMIA [None]
  - NAUSEA [None]
  - NEUROPATHY PERIPHERAL [None]
  - VOMITING [None]
